FAERS Safety Report 22203213 (Version 5)
Quarter: 2024Q4

REPORT INFORMATION
  Report Type: Spontaneous
  Country: US (occurrence: US)
  Receive Date: 20230412
  Receipt Date: 20241018
  Transmission Date: 20250115
  Serious: No
  Sender: BIOMARIN
  Company Number: US-SA-SAC20230405000152

PATIENT

DRUGS (1)
  1. LARONIDASE [Suspect]
     Active Substance: LARONIDASE
     Indication: Product used for unknown indication
     Dosage: UNK
     Route: 065

REACTIONS (1)
  - Complement factor C3 increased [Unknown]

NARRATIVE: CASE EVENT DATE: 20230320
